FAERS Safety Report 6448628-1 (Version None)
Quarter: 2009Q4

REPORT INFORMATION
  Report Type: 
  Country: None (occurrence: None)
  Receive Date: 20091120
  Receipt Date: 20091116
  Transmission Date: 20100525
  Serious: Yes (Life-Threatening, Hospitalization)
  Sender: FDA-Public Use
  Company Number: IE-NAPPMUNDI-GBR-2009-0005565

PATIENT
  Age: 39 Year
  Sex: Male
  Weight: 80 kg

DRUGS (4)
  1. OXYCONTIN [Suspect]
     Indication: PAIN
     Route: 048
  2. LYRICA [Interacting]
     Indication: PAIN
     Dosage: 300 MG, BID
     Route: 048
     Dates: start: 20070601, end: 20070722
  3. AMITRIPTYLINE HCL [Interacting]
     Indication: PAIN
     Route: 048
  4. ETHANOL [Interacting]
     Route: 048

REACTIONS (10)
  - CONCUSSION [None]
  - DEPRESSED LEVEL OF CONSCIOUSNESS [None]
  - DRUG INTERACTION [None]
  - FALL [None]
  - HYPOVENTILATION [None]
  - HYPOXIA [None]
  - LOSS OF CONSCIOUSNESS [None]
  - MULTIPLE DRUG OVERDOSE INTENTIONAL [None]
  - PNEUMONIA ASPIRATION [None]
  - RESPIRATORY ARREST [None]
